FAERS Safety Report 18939952 (Version 1)
Quarter: 2021Q1

REPORT INFORMATION
  Report Type: Report from Study
  Country: PK (occurrence: PK)
  Receive Date: 20210225
  Receipt Date: 20210225
  Transmission Date: 20210420
  Serious: Yes (Life-Threatening, Hospitalization, Other)
  Sender: FDA-Public Use
  Company Number: PK-AXELLIA-003682

PATIENT
  Age: 21 Day
  Sex: Male
  Weight: 1.65 kg

DRUGS (2)
  1. COLISTIN [Suspect]
     Active Substance: COLISTIN
     Indication: ACINETOBACTER INFECTION
     Dosage: INTRAVENTRICULAR 7 (DAYS), IV COLISTIN WAS 15 (DAYS)
  2. MEROPENEM. [Concomitant]
     Active Substance: MEROPENEM
     Indication: ACINETOBACTER INFECTION
     Route: 042

REACTIONS (1)
  - CNS ventriculitis [Recovered/Resolved]
